FAERS Safety Report 5521890-5 (Version None)
Quarter: 2007Q4

REPORT INFORMATION
  Report Type: 
  Country: None (occurrence: None)
  Receive Date: 20071115
  Receipt Date: 20071026
  Transmission Date: 20080405
  Serious: Yes (Other)
  Sender: FDA-Public Use
  Company Number: S07-SWE-05951-01

PATIENT
  Sex: Female

DRUGS (2)
  1. ESCITALOPRAM [Suspect]
     Dosage: 10 MG QD PO
     Route: 048
  2. CONCERTA [Concomitant]

REACTIONS (3)
  - LIP SWELLING [None]
  - OEDEMA PERIPHERAL [None]
  - PROTEINURIA [None]
